FAERS Safety Report 8188236-8 (Version None)
Quarter: 2012Q1

REPORT INFORMATION
  Report Type: 
  Country: None (occurrence: None)
  Receive Date: 20120306
  Receipt Date: 20120301
  Transmission Date: 20120608
  Serious: Yes (Other)
  Sender: FDA-Public Use
  Company Number: US-JNJFOC-20100801554

PATIENT
  Sex: Male

DRUGS (2)
  1. LEVAQUIN [Suspect]
     Indication: PRODUCT USED FOR UNKNOWN INDICATION
     Route: 048
  2. LEVAQUIN [Suspect]
     Indication: INFECTION PROPHYLAXIS
     Route: 048
     Dates: start: 20010101, end: 20031231

REACTIONS (5)
  - TENDONITIS [None]
  - ROTATOR CUFF SYNDROME [None]
  - ARTHRALGIA [None]
  - MUSCLE RUPTURE [None]
  - MUSCLE STRAIN [None]
